FAERS Safety Report 17351790 (Version 1)
Quarter: 2020Q1

REPORT INFORMATION
  Report Type: Spontaneous
  Country: US (occurrence: US)
  Receive Date: 20200130
  Receipt Date: 20200130
  Transmission Date: 20200409
  Serious: Yes (Other)
  Sender: FDA-Public Use
  Company Number: US-BAYER-2020-014313

PATIENT
  Sex: Female

DRUGS (3)
  1. PREMARIN [Concomitant]
     Active Substance: ESTROGENS, CONJUGATED
     Indication: MENOPAUSAL SYMPTOMS
     Dosage: 1 DF, QD
     Route: 048
  2. ASPIRIN (PAIN AND FEVER) [Suspect]
     Active Substance: ASPIRIN
     Dosage: UNK
  3. PREMARIN [Concomitant]
     Active Substance: ESTROGENS, CONJUGATED
     Indication: MENOPAUSAL SYMPTOMS
     Dosage: 0.625 MG, BIW
     Dates: start: 20200107

REACTIONS (3)
  - Drug hypersensitivity [Unknown]
  - Haemorrhage [Unknown]
  - Increased tendency to bruise [Unknown]
